FAERS Safety Report 21460876 (Version 1)
Quarter: 2022Q4

REPORT INFORMATION
  Report Type: Spontaneous
  Country: LT (occurrence: LT)
  Receive Date: 20221015
  Receipt Date: 20221015
  Transmission Date: 20230113
  Serious: Yes (Hospitalization, Other)
  Sender: FDA-Public Use
  Company Number: LT-STRIDES ARCOLAB LIMITED-2022SP013394

PATIENT
  Sex: Female

DRUGS (9)
  1. FINGOLIMOD [Suspect]
     Active Substance: FINGOLIMOD
     Indication: Multiple sclerosis
     Dosage: UNK
     Route: 065
     Dates: end: 20200824
  2. DEXAMETHASONE [Suspect]
     Active Substance: DEXAMETHASONE
     Indication: Multiple sclerosis
     Dosage: 32 MILLIGRAM, PER DAY
     Route: 042
     Dates: start: 2020
  3. DEXAMETHASONE [Suspect]
     Active Substance: DEXAMETHASONE
     Indication: Immune reconstitution inflammatory syndrome
  4. INTERFERON BETA-1A [Suspect]
     Active Substance: INTERFERON BETA-1A
     Indication: Multiple sclerosis
     Dosage: UNK
     Route: 065
  5. METHYLPREDNISOLONE [Suspect]
     Active Substance: METHYLPREDNISOLONE
     Indication: Multiple sclerosis
     Dosage: 1000 MILLIGRAM, PULSED THERAPY
     Route: 042
  6. METHYLPREDNISOLONE [Suspect]
     Active Substance: METHYLPREDNISOLONE
     Indication: Immune reconstitution inflammatory syndrome
     Dosage: UNK, HIGH DOSE
     Route: 042
     Dates: start: 20201003
  7. METHYLPREDNISOLONE [Suspect]
     Active Substance: METHYLPREDNISOLONE
     Dosage: UNK, HIGH DOSE
     Route: 042
     Dates: start: 2020
  8. MIRTAZAPINE [Concomitant]
     Active Substance: MIRTAZAPINE
     Indication: Multiple sclerosis
     Dosage: 15 MILLIGRAM, PER DAY
     Route: 065
     Dates: start: 2020
  9. MIRTAZAPINE [Concomitant]
     Active Substance: MIRTAZAPINE
     Indication: Immune reconstitution inflammatory syndrome

REACTIONS (10)
  - Multiple sclerosis [Recovered/Resolved]
  - Rebound effect [Recovered/Resolved]
  - Stomatitis [Unknown]
  - Immune reconstitution inflammatory syndrome [Recovered/Resolved]
  - Lymphopenia [Recovered/Resolved]
  - Herpes zoster [Unknown]
  - Staphylococcal sepsis [Unknown]
  - Pneumonia [Unknown]
  - JC virus infection [Unknown]
  - Drug ineffective [Unknown]

NARRATIVE: CASE EVENT DATE: 20200101
